FAERS Safety Report 23987167 (Version 1)
Quarter: 2024Q2

REPORT INFORMATION
  Report Type: Spontaneous
  Country: CN (occurrence: CN)
  Receive Date: 20240618
  Receipt Date: 20240618
  Transmission Date: 20240716
  Serious: Yes (Other)
  Sender: FDA-Public Use
  Company Number: CN-Jiangsu Hansoh Pharmaceutical Co., Ltd-2158238

PATIENT
  Age: 76 Year
  Sex: Female
  Weight: 62 kg

DRUGS (2)
  1. GEMCITABINE HYDROCHLORIDE [Suspect]
     Active Substance: GEMCITABINE HYDROCHLORIDE
     Indication: Bladder transitional cell carcinoma
     Route: 043
     Dates: start: 20240515, end: 20240522
  2. BATROXOBIN [Suspect]
     Active Substance: BATROXOBIN
     Route: 040
     Dates: start: 20240515, end: 20240515

REACTIONS (2)
  - Thrombophlebitis [Recovering/Resolving]
  - Off label use [Unknown]

NARRATIVE: CASE EVENT DATE: 20240520
